FAERS Safety Report 16535671 (Version 1)
Quarter: 2019Q3

REPORT INFORMATION
  Report Type: Report from Study
  Country: GB (occurrence: GB)
  Receive Date: 20190705
  Receipt Date: 20190705
  Transmission Date: 20191004
  Serious: Yes (Other)
  Sender: FDA-Public Use
  Company Number: GB-GLAXOSMITHKLINE-GB2019119142

PATIENT
  Age: 30 Year
  Sex: Female

DRUGS (12)
  1. LAMOTRIGINE. [Suspect]
     Active Substance: LAMOTRIGINE
     Dosage: 500 MG, QD (250 MG, 2X/DAY (BID))
     Route: 065
  2. LEVETIRACETAM. [Suspect]
     Active Substance: LEVETIRACETAM
     Dosage: UNK (REDUCTION DOSE)
     Route: 065
  3. LAMOTRIGINE. [Suspect]
     Active Substance: LAMOTRIGINE
     Dosage: 800 MG, QD (400 MG, 2X/DAY (BID))
     Route: 065
  4. LAMOTRIGINE. [Suspect]
     Active Substance: LAMOTRIGINE
     Dosage: 500 MG, QD (250 MG, 2X/DAY (BID) )
     Route: 065
  5. LAMOTRIGINE. [Suspect]
     Active Substance: LAMOTRIGINE
     Dosage: 550 MG, QD (275 MG, 2X/DAY (BID) )
     Route: 065
  6. LEVETIRACETAM. [Suspect]
     Active Substance: LEVETIRACETAM
     Indication: PRODUCT USED FOR UNKNOWN INDICATION
     Dosage: UNK (SLOW RE-INTRODUCTION)
     Route: 065
  7. LEVETIRACETAM. [Suspect]
     Active Substance: LEVETIRACETAM
     Dosage: 3000 MG, QD (1500 MG, 2X/DAY (BID))
     Route: 065
  8. PARACETAMOL [Concomitant]
     Active Substance: ACETAMINOPHEN
     Indication: HEADACHE
     Dosage: UNK
     Route: 065
  9. EPILIM [Concomitant]
     Active Substance: VALPROATE SODIUM
     Indication: PRODUCT USED FOR UNKNOWN INDICATION
     Dosage: UNK
     Route: 065
  10. ZONISAMIDE. [Suspect]
     Active Substance: ZONISAMIDE
     Indication: PRODUCT USED FOR UNKNOWN INDICATION
     Dosage: UNK
     Route: 065
  11. LAMOTRIGINE. [Suspect]
     Active Substance: LAMOTRIGINE
     Indication: PRODUCT USED FOR UNKNOWN INDICATION
     Dosage: 600 MG, QD (300 MG, 2X/DAY (BID))
     Route: 065
  12. CLOBAZAM. [Concomitant]
     Active Substance: CLOBAZAM
     Indication: PRODUCT USED FOR UNKNOWN INDICATION
     Dosage: UNK
     Route: 065

REACTIONS (26)
  - Anxiety [Unknown]
  - Anger [Recovered/Resolved]
  - Suicidal ideation [Unknown]
  - Psychiatric symptom [Unknown]
  - Indifference [Unknown]
  - Emotional disorder [Unknown]
  - Adverse drug reaction [Unknown]
  - Flat affect [Unknown]
  - Impatience [Unknown]
  - Feeling drunk [Unknown]
  - Unevaluable event [Unknown]
  - Loss of personal independence in daily activities [Unknown]
  - Mental disorder [Unknown]
  - Paranoia [Unknown]
  - Maternal exposure during pregnancy [Unknown]
  - Drug intolerance [Unknown]
  - Dizziness [Unknown]
  - Fatigue [Not Recovered/Not Resolved]
  - Mood altered [Unknown]
  - Personality change [Unknown]
  - Balance disorder [Unknown]
  - Epilepsy [Unknown]
  - Pneumonia [Unknown]
  - Hypersensitivity [Unknown]
  - Weight increased [Unknown]
  - Arthralgia [Unknown]
